FAERS Safety Report 17216894 (Version 5)
Quarter: 2020Q3

REPORT INFORMATION
  Report Type: Report from Study
  Country: US (occurrence: US)
  Receive Date: 20191231
  Receipt Date: 20200817
  Transmission Date: 20201102
  Serious: Yes (Congenital Anomaly, Other)
  Sender: FDA-Public Use
  Company Number: US-AUROBINDO-AUR-APL-2019-107467

PATIENT
  Age: 40 Week
  Sex: Male
  Weight: 3.6 kg

DRUGS (7)
  1. EMTRICITABINE AND TENOFOVIR [Suspect]
     Active Substance: EMTRICITABINE\TENOFOVIR
     Dosage: 4 DOSAGE FORM
     Route: 064
     Dates: start: 20190410
  2. RITONAVIR. [Suspect]
     Active Substance: RITONAVIR
     Indication: PRODUCT USED FOR UNKNOWN INDICATION
     Dosage: 1 DOSAGE FORM, SECOND TRIMESTER
     Route: 064
     Dates: start: 20181212
  3. ATAZANAVIR. [Suspect]
     Active Substance: ATAZANAVIR
     Indication: PRODUCT USED FOR UNKNOWN INDICATION
     Dosage: 1 DOSAGE FORM, SECOND TRIMESTER
     Route: 064
     Dates: start: 20181212
  4. RETROVIR [Suspect]
     Active Substance: ZIDOVUDINE
     Indication: PRODUCT USED FOR UNKNOWN INDICATION
     Dosage: 2 MILLIGRAM/KILOGRAM, EVERY HOUR, THIRD TRIMESTER
     Route: 064
     Dates: start: 20190520, end: 20190520
  5. EMTRICITABINE AND TENOFOVIR [Suspect]
     Active Substance: EMTRICITABINE\TENOFOVIR
     Indication: PRODUCT USED FOR UNKNOWN INDICATION
     Dosage: 1 DOSAGE FORM, SECOND TRIMESTER
     Route: 064
     Dates: start: 20181212, end: 20190410
  6. RETROVIR [Suspect]
     Active Substance: ZIDOVUDINE
     Dosage: 1 MILLIGRAM/KILOGRAM, EVERY HOUR, THIRD TRIMESTER
     Route: 064
     Dates: start: 20190520, end: 20190520
  7. COCAINE [Suspect]
     Active Substance: COCAINE
     Indication: PRODUCT USED FOR UNKNOWN INDICATION
     Dosage: UNK
     Route: 064

REACTIONS (4)
  - Chordee [Unknown]
  - Hypospadias [Unknown]
  - Foetal exposure during pregnancy [Unknown]
  - Genitalia external ambiguous [Unknown]
